FAERS Safety Report 7323385-5 (Version None)
Quarter: 2011Q1

REPORT INFORMATION
  Report Type: 
  Country: None (occurrence: None)
  Receive Date: 20110217
  Receipt Date: 20110201
  Transmission Date: 20110831
  Serious: Yes (Hospitalization)
  Sender: FDA-Public Use
  Company Number: FK201100114

PATIENT
  Age: 76 Year
  Sex: Male

DRUGS (2)
  1. FLUOROURACIL [Suspect]
     Indication: RECTAL CANCER
  2. CAPECITABINE [Suspect]
     Indication: RECTAL CANCER

REACTIONS (5)
  - ELECTROCARDIOGRAM T WAVE ABNORMAL [None]
  - CHEST PAIN [None]
  - ARTERIOSPASM CORONARY [None]
  - ELECTROCARDIOGRAM ST SEGMENT ELEVATION [None]
  - FEMUR FRACTURE [None]
